FAERS Safety Report 18917665 (Version 1)
Quarter: 2021Q1

REPORT INFORMATION
  Report Type: Spontaneous
  Country: GB (occurrence: GB)
  Receive Date: 20210219
  Receipt Date: 20210219
  Transmission Date: 20210420
  Serious: Yes (Other)
  Sender: FDA-Public Use
  Company Number: GB-MYLANLABS-2021M1010042

PATIENT
  Age: 40 Year
  Sex: Male
  Weight: 95.25 kg

DRUGS (1)
  1. BISOPROLOL [Suspect]
     Active Substance: BISOPROLOL
     Indication: SUPRAVENTRICULAR TACHYCARDIA
     Dosage: UNK
     Route: 048
     Dates: start: 20120206, end: 20120406

REACTIONS (1)
  - Nightmare [Recovered/Resolved]

NARRATIVE: CASE EVENT DATE: 20120208
